FAERS Safety Report 8389016-0 (Version None)
Quarter: 2012Q2

REPORT INFORMATION
  Report Type: 
  Country: None (occurrence: None)
  Receive Date: 20120528
  Receipt Date: 20120523
  Transmission Date: 20120825
  Serious: No
  Sender: FDA-Public Use
  Company Number: US-PFIZER INC-2012125892

PATIENT
  Sex: Male
  Weight: 107 kg

DRUGS (2)
  1. VIAGRA [Interacting]
     Indication: ERECTILE DYSFUNCTION
     Dosage: 100 MG, AS NEEDED
     Route: 048
     Dates: start: 20110101
  2. EFFEXOR [Suspect]
     Indication: DEPRESSION
     Dosage: 225 MG, 1X/DAY
     Route: 048
     Dates: start: 20020101

REACTIONS (2)
  - HYPERTENSION [None]
  - DRUG INTERACTION [None]
